FAERS Safety Report 6603265-0 (Version None)
Quarter: 2010Q1

REPORT INFORMATION
  Report Type: 
  Country: None (occurrence: None)
  Receive Date: 20100226
  Receipt Date: 20100215
  Transmission Date: 20100710
  Serious: Yes (Death)
  Sender: FDA-Public Use
  Company Number: US-JNJFOC-20100208254

PATIENT
  Sex: Female
  Weight: 54.43 kg

DRUGS (5)
  1. FENTANYL [Suspect]
     Indication: DRUG USE FOR UNKNOWN INDICATION
     Route: 062
  2. DIAZEPAM [Concomitant]
     Route: 065
  3. BENZOYLECGONINE [Concomitant]
     Route: 065
  4. NORDIAZEPAM [Concomitant]
     Route: 065
  5. MORPHINE [Concomitant]
     Route: 065

REACTIONS (1)
  - BRONCHOPNEUMONIA [None]
